FAERS Safety Report 4908496-3 (Version None)
Quarter: 2006Q1

REPORT INFORMATION
  Report Type: 
  Country: None (occurrence: None)
  Receive Date: 20060210
  Receipt Date: 20050805
  Transmission Date: 20060701
  Serious: No
  Sender: FDA-Public Use
  Company Number: US-GLAXOSMITHKLINE-A0569121A

PATIENT
  Sex: Male

DRUGS (3)
  1. PAXIL CR [Suspect]
     Dosage: 25MG AT NIGHT
     Route: 048
     Dates: start: 20050701
  2. ZOCOR [Concomitant]
  3. PLAVIX [Concomitant]

REACTIONS (1)
  - POLLAKIURIA [None]
